FAERS Safety Report 18550776 (Version 1)
Quarter: 2020Q4

REPORT INFORMATION
  Report Type: Other
  Country: GB (occurrence: GB)
  Receive Date: 20201126
  Receipt Date: 20201126
  Transmission Date: 20210114
  Serious: No
  Sender: FDA-Public Use
  Company Number: GB-LUPIN PHARMACEUTICALS INC.-2020-05736

PATIENT
  Age: 23 Year
  Sex: Female
  Weight: 53.4 kg

DRUGS (5)
  1. ALVERINE [Concomitant]
     Active Substance: ALVERINE
     Indication: ABDOMINAL PAIN
     Dosage: 1 DOSAGE FORM, BID
     Route: 065
     Dates: start: 20200615, end: 20200804
  2. MEBEVERINE [Concomitant]
     Active Substance: MEBEVERINE
     Dosage: 1 DOSAGE FORM, TID (20 MINUTES BEFORE FOOD)
     Route: 065
     Dates: start: 20200714
  3. SERTRALINE [Suspect]
     Active Substance: SERTRALINE HYDROCHLORIDE
     Indication: MIXED ANXIETY AND DEPRESSIVE DISORDER
     Dosage: 1 DOSAGE FORM, QD
     Route: 065
     Dates: start: 20200803, end: 20200807
  4. OMEPRAZOLE. [Concomitant]
     Active Substance: OMEPRAZOLE
     Indication: ABDOMINAL PAIN
     Dosage: 2 DOSAGE FORM, QD
     Route: 065
     Dates: start: 20200622, end: 20200804
  5. MEBEVERINE [Concomitant]
     Active Substance: MEBEVERINE
     Indication: ABDOMINAL PAIN
     Dosage: 1 DOSAGE FORM, BID (ONE IN THE MORNING AND ONE IN THE EVENING)
     Dates: start: 20200518, end: 20200615

REACTIONS (3)
  - Diarrhoea [Recovered/Resolved]
  - Illness [Recovered/Resolved]
  - Pain [Recovered/Resolved]

NARRATIVE: CASE EVENT DATE: 20200803
